FAERS Safety Report 23923020 (Version 1)
Quarter: 2024Q2

REPORT INFORMATION
  Report Type: Spontaneous
  Country: ES (occurrence: ES)
  Receive Date: 20240531
  Receipt Date: 20240531
  Transmission Date: 20240716
  Serious: Yes (Death, Hospitalization, Other)
  Sender: FDA-Public Use
  Company Number: None

PATIENT
  Age: 72 Year
  Sex: Female

DRUGS (2)
  1. FLUDARABINE [Suspect]
     Active Substance: FLUDARABINE PHOSPHATE
     Indication: Mantle cell lymphoma
     Dosage: FLUDARABINE (3698A)
     Route: 042
     Dates: start: 20210127, end: 20210129
  2. TECARTUS [Suspect]
     Active Substance: BREXUCABTAGENE AUTOLEUCEL
     Indication: Mantle cell lymphoma
     Dosage: TIME INTERVAL: TOTAL
     Route: 042
     Dates: start: 20210205, end: 20210205

REACTIONS (6)
  - Diarrhoea [Fatal]
  - Cytokine release syndrome [Fatal]
  - Cytomegalovirus infection reactivation [Fatal]
  - Immune effector cell-associated neurotoxicity syndrome [Fatal]
  - Asthenia [Fatal]
  - Cytopenia [Fatal]

NARRATIVE: CASE EVENT DATE: 20210201
